FAERS Safety Report 7384841-7 (Version None)
Quarter: 2011Q1

REPORT INFORMATION
  Report Type: 
  Country: None (occurrence: None)
  Receive Date: 20110330
  Receipt Date: 20110316
  Transmission Date: 20110831
  Serious: Yes (Other)
  Sender: FDA-Public Use
  Company Number: JP-JNJFOC-20091001970

PATIENT
  Sex: Male
  Weight: 52 kg

DRUGS (41)
  1. REMICADE [Suspect]
     Route: 042
     Dates: start: 20070803, end: 20081028
  2. REMICADE [Suspect]
     Route: 042
     Dates: start: 20070803, end: 20081028
  3. RINDERON-A [Concomitant]
     Indication: BEHCET'S SYNDROME
  4. LOXOPROFEN [Concomitant]
     Route: 048
  5. REMICADE [Suspect]
     Route: 042
     Dates: start: 20070803, end: 20081028
  6. COLCHICINE [Concomitant]
     Indication: BEHCET'S SYNDROME
     Route: 048
  7. ISONIAZID [Concomitant]
     Indication: ANTIBIOTIC PROPHYLAXIS
     Route: 048
  8. ANTIHISTAMINES [Concomitant]
  9. AZOPT [Concomitant]
     Indication: BEHCET'S SYNDROME
  10. HYPADIL [Concomitant]
     Indication: BEHCET'S SYNDROME
  11. LOXOPROFEN [Concomitant]
     Route: 048
  12. REMICADE [Suspect]
     Route: 042
     Dates: start: 20070803, end: 20081028
  13. ANTIHISTAMINES [Concomitant]
  14. ANTIHISTAMINES [Concomitant]
  15. ANTIHISTAMINES [Concomitant]
  16. ACETAZOLAMIDE [Concomitant]
     Indication: BEHCET'S SYNDROME
     Route: 048
  17. LOXOPROFEN [Concomitant]
     Indication: PROPHYLAXIS
     Route: 048
  18. REMICADE [Suspect]
     Route: 042
     Dates: start: 20070803, end: 20081028
  19. REMICADE [Suspect]
     Route: 042
     Dates: start: 20070803, end: 20081028
  20. ISONIAZID [Concomitant]
     Route: 048
  21. ANTIHISTAMINES [Concomitant]
  22. LOXOPROFEN [Concomitant]
     Route: 048
  23. LOXOPROFEN [Concomitant]
     Route: 048
  24. LOXOPROFEN [Concomitant]
     Route: 048
  25. LOXOPROFEN [Concomitant]
     Route: 048
  26. REMICADE [Suspect]
     Indication: BEHCET'S SYNDROME
     Route: 042
     Dates: start: 20070803, end: 20081028
  27. REMICADE [Suspect]
     Route: 042
     Dates: start: 20070803, end: 20081028
  28. REMICADE [Suspect]
     Route: 042
     Dates: start: 20070803, end: 20081028
  29. ADONA [Suspect]
     Indication: BEHCET'S SYNDROME
     Route: 048
  30. LOXOPROFEN [Concomitant]
     Route: 048
  31. LOXOPROFEN [Concomitant]
     Route: 048
  32. ANTIHISTAMINES [Concomitant]
  33. ANTIHISTAMINES [Concomitant]
  34. ANTIHISTAMINES [Concomitant]
  35. ANTIHISTAMINES [Concomitant]
  36. ASPARTATE POTASSIUM [Concomitant]
     Indication: BEHCET'S SYNDROME
     Route: 048
  37. TIMOLOL MALEATE [Concomitant]
     Indication: BEHCET'S SYNDROME
  38. ATROPINE [Concomitant]
     Indication: BEHCET'S SYNDROME
  39. LOXOPROFEN [Concomitant]
     Route: 048
  40. REMICADE [Suspect]
     Route: 042
     Dates: start: 20070803, end: 20081028
  41. ANTIHISTAMINES [Concomitant]
     Indication: PROPHYLAXIS

REACTIONS (1)
  - GLAUCOMA [None]
